FAERS Safety Report 19434838 (Version 3)
Quarter: 2023Q2

REPORT INFORMATION
  Report Type: Spontaneous
  Country: US (occurrence: None)
  Receive Date: 20210617
  Receipt Date: 20230517
  Transmission Date: 20230722
  Serious: No
  Sender: FDA-Public Use
  Company Number: US-ROCHE-2658424

PATIENT
  Age: 66 Year
  Sex: Male

DRUGS (8)
  1. ACTEMRA [Suspect]
     Active Substance: TOCILIZUMAB
     Indication: Hyperlipidaemia
     Route: 058
  2. ACTEMRA [Suspect]
     Active Substance: TOCILIZUMAB
  3. FOLIC ACID [Concomitant]
     Active Substance: FOLIC ACID
  4. LOSARTAN POTASSIUM [Concomitant]
     Active Substance: LOSARTAN POTASSIUM
  5. METHOTREXATE [Concomitant]
     Active Substance: METHOTREXATE
  6. NEXIUM [Concomitant]
     Active Substance: ESOMEPRAZOLE MAGNESIUM
  7. OTREXUP [Concomitant]
     Active Substance: METHOTREXATE
  8. TRICOR [Concomitant]
     Active Substance: FENOFIBRATE

REACTIONS (3)
  - Off label use [Unknown]
  - Sinusitis [Unknown]
  - Product dose omission issue [Unknown]
